FAERS Safety Report 9642088 (Version 2)
Quarter: 2014Q1

REPORT INFORMATION
  Report Type: Report from Study
  Country: US (occurrence: US)
  Receive Date: 20131023
  Receipt Date: 20140102
  Transmission Date: 20141002
  Serious: Yes (Hospitalization)
  Sender: FDA-Public Use
  Company Number: US-ROCHE-1292961

PATIENT
  Age: 45 Year
  Sex: Female

DRUGS (6)
  1. TRASTUZUMAB EMTANSINE [Suspect]
     Indication: BREAST CANCER
     Dosage: DATE OF THE MOST RECENT DOSE : 26/SEP/2013
     Route: 042
     Dates: start: 20130723
  2. MAGNESIUM GLUCONATE [Concomitant]
     Indication: HYPOMAGNESAEMIA
     Route: 065
     Dates: start: 20120103
  3. ZOFRAN [Concomitant]
     Indication: PROPHYLAXIS OF NAUSEA AND VOMITING
     Route: 065
     Dates: start: 20110321
  4. MECLIZINE [Concomitant]
     Indication: DISORIENTATION
     Route: 065
     Dates: start: 20130408
  5. TYLENOL [Concomitant]
     Indication: RESTLESS LEGS SYNDROME
     Route: 065
     Dates: start: 20120920
  6. CLINDAMYCIN [Concomitant]
     Indication: RASH
     Route: 065
     Dates: start: 20130722

REACTIONS (1)
  - Upper gastrointestinal haemorrhage [Recovered/Resolved]
